FAERS Safety Report 9248206 (Version 1)
Quarter: 2013Q2

REPORT INFORMATION
  Report Type: Report from Study
  Country: BR (occurrence: BR)
  Receive Date: 20130423
  Receipt Date: 20130423
  Transmission Date: 20140414
  Serious: Yes (Death, Hospitalization, Other)
  Sender: FDA-Public Use
  Company Number: PHHY2013BR039304

PATIENT
  Age: 83 Year
  Sex: Male
  Weight: 70 kg

DRUGS (8)
  1. FORASEQ [Suspect]
     Indication: CHRONIC OBSTRUCTIVE PULMONARY DISEASE
     Dosage: 1 DF, Q12H (1 CAPSULE OF EACH TREATMENT)
     Dates: start: 2007
  2. LOSARTAN [Concomitant]
     Indication: HYPERTENSION
     Dosage: 1 DF, QD
     Route: 048
  3. HYDROCHLOROTHIAZIDE [Concomitant]
     Indication: HYPERTENSION
     Dosage: 1 DF, QD
     Route: 048
  4. METFORMIN [Concomitant]
     Indication: DIABETES MELLITUS
     Dosage: 2 DF, (1 TABLET AFTER LUNCH AND 1 TABLET AFER DINNER)
     Route: 048
  5. DIAMICRON [Concomitant]
     Indication: DIABETES MELLITUS
     Dosage: 1 DF, QD (IN FASTING)
     Route: 048
  6. COMBIVENT [Concomitant]
     Indication: FATIGUE
     Dosage: PRN
  7. BEROTEC [Concomitant]
  8. ATROVENT [Concomitant]

REACTIONS (3)
  - Cerebrovascular accident [Fatal]
  - Pneumonia [Fatal]
  - Infection [Not Recovered/Not Resolved]
